FAERS Safety Report 25973603 (Version 1)
Quarter: 2025Q4

REPORT INFORMATION
  Report Type: Spontaneous
  Country: CN (occurrence: CN)
  Receive Date: 20251029
  Receipt Date: 20251029
  Transmission Date: 20260117
  Serious: Yes (Other)
  Sender: BAXTER
  Company Number: None

PATIENT
  Age: 65 Year
  Sex: Female
  Weight: 59 kg

DRUGS (4)
  1. CYCLOPHOSPHAMIDE [Suspect]
     Active Substance: CYCLOPHOSPHAMIDE
     Indication: Breast cancer female
     Dosage: 1 G, QD (WITH 0.9% SODIUM CHLORIDE INJECTION)
     Route: 041
     Dates: start: 20250930, end: 20250930
  2. SODIUM CHLORIDE [Suspect]
     Active Substance: SODIUM CHLORIDE
     Dosage: 0.9% NS 100 ML, QD (WITH CYCLOPHOSPHAMIDE FOR INJECTION) [FORMULATION: INJECTION]
     Route: 041
     Dates: start: 20250930, end: 20250930
  3. DEXTROSE [Suspect]
     Active Substance: DEXTROSE MONOHYDRATE
     Dosage: 0.9% NS 250 ML, QD (WITH EPIRUBICIN HYDROCHLORIDE FOR INJECTION) [FORMULATION: INJECTION]
     Route: 041
     Dates: start: 20250930, end: 20250930
  4. EPIRUBICIN HYDROCHLORIDE [Suspect]
     Active Substance: EPIRUBICIN HYDROCHLORIDE
     Indication: Breast cancer female
     Dosage: 160 MG, QD (WITH 5% GLUCOSE INJECTION)
     Route: 041
     Dates: start: 20250930, end: 20250930

REACTIONS (4)
  - Myelosuppression [Unknown]
  - Granulocyte count decreased [Unknown]
  - White blood cell count decreased [Recovering/Resolving]
  - Neutrophil count decreased [Recovering/Resolving]

NARRATIVE: CASE EVENT DATE: 20251010
